FAERS Safety Report 5532189-5 (Version None)
Quarter: 2007Q4

REPORT INFORMATION
  Report Type: 
  Country: None (occurrence: None)
  Receive Date: 20071203
  Receipt Date: 20071121
  Transmission Date: 20080405
  Serious: Yes (Other)
  Sender: FDA-Public Use
  Company Number: US-AVENTIS-200718251US

PATIENT
  Age: 80 Year
  Sex: Male

DRUGS (4)
  1. LANTUS [Suspect]
     Route: 051
     Dates: start: 20071001, end: 20070101
  2. LANTUS [Suspect]
     Dosage: DOSE: 10-11
     Route: 051
     Dates: start: 20070101
  3. CARDIOVASCULAR SYSTEM DRUGS [Concomitant]
     Dosage: DOSE: UNK
  4. NOVOLOG [Concomitant]
     Dosage: DOSE: UNK

REACTIONS (5)
  - ANGINA PECTORIS [None]
  - BLOOD GLUCOSE DECREASED [None]
  - BLOOD GLUCOSE INCREASED [None]
  - DRUG INEFFECTIVE [None]
  - GLYCOSYLATED HAEMOGLOBIN INCREASED [None]
